FAERS Safety Report 11854100 (Version 1)
Quarter: 2015Q4

REPORT INFORMATION
  Report Type: Spontaneous
  Country: IL (occurrence: IL)
  Receive Date: 20151219
  Receipt Date: 20151219
  Transmission Date: 20160305
  Serious: Yes (Disabling)
  Sender: FDA-Public Use
  Company Number: IL-009507513-1512ISR006517

PATIENT
  Age: 30 Year
  Sex: Male

DRUGS (1)
  1. PROPECIA [Suspect]
     Active Substance: FINASTERIDE
     Indication: ANDROGENETIC ALOPECIA
     Dosage: ^30 MG TABLETS^, QD
     Route: 048
     Dates: start: 20100601, end: 201101

REACTIONS (24)
  - Sperm concentration decreased [Recovered/Resolved]
  - Spermatozoa progressive motility decreased [Recovered/Resolved]
  - Erectile dysfunction [Recovering/Resolving]
  - Renal disorder [Unknown]
  - Road traffic accident [Unknown]
  - Pain in extremity [Unknown]
  - Dyspepsia [Unknown]
  - Lipids increased [Recovering/Resolving]
  - Diarrhoea [Unknown]
  - Dizziness [Unknown]
  - Chlamydial infection [Unknown]
  - Testicular pain [Unknown]
  - Drug ineffective [Unknown]
  - Anxiety [Unknown]
  - Respiratory tract infection [Unknown]
  - Laceration [Unknown]
  - Anger [Unknown]
  - Hypochondriasis [Unknown]
  - Abdominal pain upper [Unknown]
  - Sexual dysfunction [Not Recovered/Not Resolved]
  - Protein urine present [Unknown]
  - Frustration [Unknown]
  - Change of bowel habit [Unknown]
  - Head injury [Unknown]

NARRATIVE: CASE EVENT DATE: 20100601
